FAERS Safety Report 7892413-0 (Version None)
Quarter: 2011Q4

REPORT INFORMATION
  Report Type: 
  Country: None (occurrence: None)
  Receive Date: 20111102
  Receipt Date: 20111021
  Transmission Date: 20120403
  Serious: Yes (Other)
  Sender: FDA-Public Use
  Company Number: DSA_47730_2011

PATIENT
  Sex: Female

DRUGS (2)
  1. PAROXETINE HCL [Concomitant]
  2. WELLBUTRIN [Suspect]
     Indication: PRODUCT USED FOR UNKNOWN INDICATION
     Dosage: (150 MG)

REACTIONS (1)
  - ORAL HERPES [None]
